FAERS Safety Report 17352383 (Version 1)
Quarter: 2020Q1

REPORT INFORMATION
  Report Type: Report from Study
  Country: None (occurrence: US)
  Receive Date: 20200130
  Receipt Date: 20200130
  Transmission Date: 20200409
  Serious: Yes (Other)
  Sender: FDA-Public Use
  Company Number: US-ABBVIE-19K-163-2934144-00

PATIENT
  Age: 71 Year
  Sex: Female
  Weight: 97.61 kg

DRUGS (1)
  1. HUMIRA [Suspect]
     Active Substance: ADALIMUMAB
     Indication: RHEUMATOID ARTHRITIS
     Route: 058
     Dates: start: 2010, end: 201911

REACTIONS (8)
  - Cataract [Recovering/Resolving]
  - Cardiac failure [Recovered/Resolved]
  - Deep brain stimulation [Recovered/Resolved]
  - Deep brain stimulation [Unknown]
  - Tremor [Recovered/Resolved]
  - Skin lesion [Unknown]
  - Post procedural complication [Unknown]
  - Cardiac failure [Not Recovered/Not Resolved]

NARRATIVE: CASE EVENT DATE: 2014
